FAERS Safety Report 5524476-1 (Version None)
Quarter: 2007Q4

REPORT INFORMATION
  Report Type: 
  Country: None (occurrence: None)
  Receive Date: 20071122
  Receipt Date: 20071112
  Transmission Date: 20080405
  Serious: Yes (Other)
  Sender: FDA-Public Use
  Company Number: PHEH2006US10884

PATIENT
  Age: 43 Year
  Sex: Female
  Weight: 66.7 kg

DRUGS (6)
  1. AREDIA [Suspect]
     Dosage: 90 MG, QMO
  2. ZOMETA [Suspect]
  3. DEXAMETHASONE [Concomitant]
     Indication: MULTIPLE MYELOMA
     Dates: end: 20000111
  4. INTERFERON [Concomitant]
     Indication: MULTIPLE MYELOMA
     Dates: end: 20000111
  5. THALIDOMIDE [Concomitant]
     Indication: MULTIPLE MYELOMA
     Dosage: 100 MG, QD
     Route: 048
     Dates: start: 20000111
  6. PROCARDIA XL [Concomitant]
     Dosage: 30 MG, QD
     Route: 048

REACTIONS (13)
  - ANXIETY [None]
  - BLINDNESS [None]
  - DECREASED INTEREST [None]
  - DIZZINESS [None]
  - GENERAL PHYSICAL HEALTH DETERIORATION [None]
  - NUCLEAR MAGNETIC RESONANCE IMAGING BRAIN [None]
  - OPTIC NEURITIS [None]
  - OSTEONECROSIS [None]
  - PAIN [None]
  - PARANASAL SINUS BENIGN NEOPLASM [None]
  - PYREXIA [None]
  - TUBERCULOSIS [None]
  - VISUAL DISTURBANCE [None]
